FAERS Safety Report 6586323-9 (Version None)
Quarter: 2010Q1

REPORT INFORMATION
  Report Type: 
  Country: None (occurrence: None)
  Receive Date: 20100217
  Receipt Date: 20100210
  Transmission Date: 20100710
  Serious: Yes (Life-Threatening, Hospitalization, Other)
  Sender: FDA-Public Use
  Company Number: AU-MERCK-1001USA02072

PATIENT
  Age: 68 Year
  Sex: Female
  Weight: 65 kg

DRUGS (3)
  1. VYTORIN [Suspect]
     Route: 048
     Dates: start: 20090227, end: 20090406
  2. MICARDIS [Concomitant]
     Indication: HYPERTENSION
     Route: 065
  3. VERACAPS SR [Concomitant]
     Indication: HYPERTENSION
     Route: 065

REACTIONS (1)
  - POLYMYALGIA RHEUMATICA [None]
